FAERS Safety Report 10010331 (Version 2)
Quarter: 2014Q1

REPORT INFORMATION
  Report Type: Spontaneous
  Country: PL (occurrence: PL)
  Receive Date: 20140314
  Receipt Date: 20140329
  Transmission Date: 20141002
  Serious: Yes (Hospitalization)
  Sender: FDA-Public Use
  Company Number: PL-ROCHE-1362692

PATIENT
  Age: 59 Year
  Sex: Female
  Weight: 70 kg

DRUGS (2)
  1. XELODA [Suspect]
     Indication: COLORECTAL CANCER
     Dosage: 3900 TWICE A DAY
     Route: 048
     Dates: start: 20140224, end: 20140305
  2. IRINOTECAN [Concomitant]
     Indication: COLORECTAL CANCER
     Route: 042
     Dates: start: 20140224, end: 20140224

REACTIONS (2)
  - Intestinal ulcer [Recovered/Resolved]
  - Diarrhoea [Recovered/Resolved]
